FAERS Safety Report 8840171 (Version 2)
Quarter: 2012Q4

REPORT INFORMATION
  Report Type: Report from Study
  Country: CA (occurrence: CA)
  Receive Date: 20121015
  Receipt Date: 20121018
  Transmission Date: 20130627
  Serious: Yes (Other)
  Sender: FDA-Public Use
  Company Number: CA-ROCHE-1145161

PATIENT
  Age: 60 Year
  Sex: Male
  Weight: 107.6 kg

DRUGS (9)
  1. RITUXIMAB [Suspect]
     Indication: WARM TYPE HAEMOLYTIC ANAEMIA
     Route: 042
     Dates: start: 20120918
  2. FOLIC ACID [Concomitant]
  3. HEPARIN [Concomitant]
  4. CALCIUM [Concomitant]
  5. VITAMIN D [Concomitant]
  6. MAGNESIUM [Concomitant]
  7. VITAMIN B12 [Concomitant]
  8. PREDNISONE [Concomitant]
  9. ANTACID (UNK BRAND) [Concomitant]

REACTIONS (2)
  - Haemoglobin decreased [Not Recovered/Not Resolved]
  - Nausea [Recovered/Resolved]
